FAERS Safety Report 8609195 (Version 5)
Quarter: 2012Q4

REPORT INFORMATION
  Report Type: Report from Study
  Country: SE (occurrence: SE)
  Receive Date: 20120611
  Receipt Date: 20121030
  Transmission Date: 20130627
  Serious: Yes (Hospitalization)
  Sender: FDA-Public Use
  Company Number: SE-ROCHE-1076345

PATIENT
  Age: 70 Year
  Sex: Male
  Weight: 95.1 kg

DRUGS (6)
  1. VEMURAFENIB [Suspect]
     Indication: MALIGNANT MELANOMA
     Dosage: LAST DOSE PRIOR TO THE SAE ON 20/MAY/2012
     Route: 048
     Dates: start: 20120130, end: 20120522
  2. VEMURAFENIB [Suspect]
     Route: 048
     Dates: start: 20120717
  3. FELODIPIN [Concomitant]
     Route: 065
     Dates: start: 20111215
  4. SIMVASTATIN [Concomitant]
     Route: 065
     Dates: start: 201104
  5. TROMBYL [Concomitant]
     Route: 065
     Dates: start: 201104, end: 20120524
  6. TROMBYL [Concomitant]
     Route: 065
     Dates: start: 20120716

REACTIONS (1)
  - Brain abscess [Recovered/Resolved with Sequelae]
